FAERS Safety Report 9842366 (Version 1)
Quarter: 2013Q4

REPORT INFORMATION
  Report Type: Spontaneous
  Country: US (occurrence: None)
  Receive Date: 20131219
  Receipt Date: 20131219
  Transmission Date: 20140711
  Serious: Yes (Disabling, Other)
  Sender: FDA-Public Use
  Company Number: 163-20785-13013943

PATIENT
  Age: 53 Year
  Sex: Male

DRUGS (6)
  1. THALOMID (THALIDOMIDE) (100 MILLIGRAM, CAPSULES) [Suspect]
     Indication: PLASMA CELL MYELOMA
     Dosage: 100 MG, QHS, PO
     Route: 048
     Dates: start: 20120305, end: 20130125
  2. DECADRON (DEXAMETHASONE) (UNKNOWN) [Concomitant]
  3. DILAUDID (HYDROMORPHONE HYDROCHLORIDE) (UNKNOWN)? [Concomitant]
  4. MS CONTIN (MORPHINE SULFATE) (UNKNOWN) [Concomitant]
  5. EFFEXOR XL (VENLAFAXINE HYDROCHLORIDE) (UNKNOWN) [Concomitant]
  6. LASIX (FUROSEMIDE) (UNKNOWN) [Concomitant]

REACTIONS (1)
  - Neuropathy peripheral [None]
